FAERS Safety Report 19657541 (Version 4)
Quarter: 2021Q3

REPORT INFORMATION
  Report Type: Report from Study
  Country: IT (occurrence: IT)
  Receive Date: 20210804
  Receipt Date: 20210920
  Transmission Date: 20211014
  Serious: Yes (Hospitalization)
  Sender: FDA-Public Use
  Company Number: IT-ALLERGAN-2126935US

PATIENT
  Sex: Female

DRUGS (4)
  1. STILNOX [Suspect]
     Active Substance: ZOLPIDEM TARTRATE
     Indication: DRUG ABUSE
     Dosage: 1500 MG
     Route: 065
     Dates: start: 20210514, end: 20210514
  2. LORAZEPAM. [Suspect]
     Active Substance: LORAZEPAM
     Indication: DRUG ABUSE
     Dosage: 20 MG
     Route: 065
     Dates: start: 20210514, end: 20210514
  3. OLANZAPINE. [Suspect]
     Active Substance: OLANZAPINE
     Indication: DRUG ABUSE
     Dosage: 420 MG
     Route: 065
     Dates: start: 20210514, end: 20210514
  4. ESCITALOPRAM OXALATE UNK [Suspect]
     Active Substance: ESCITALOPRAM OXALATE
     Indication: DRUG ABUSE
     Dosage: OVERDOSE: 150MG
     Dates: start: 20210514, end: 20210514

REACTIONS (8)
  - Depressed level of consciousness [Recovering/Resolving]
  - Mydriasis [Recovering/Resolving]
  - Overdose [Unknown]
  - Sopor [Recovering/Resolving]
  - Product use in unapproved indication [Unknown]
  - Tachycardia [Recovering/Resolving]
  - Hypertonia [Recovering/Resolving]
  - Drug abuse [Recovering/Resolving]

NARRATIVE: CASE EVENT DATE: 20210514
